FAERS Safety Report 12936239 (Version 1)
Quarter: 2016Q4

REPORT INFORMATION
  Report Type: Spontaneous
  Country: US (occurrence: US)
  Receive Date: 20161112
  Receipt Date: 20161112
  Transmission Date: 20170207
  Serious: No
  Sender: FDA-Public Use
  Company Number: None

PATIENT
  Age: 31 Year
  Sex: Male
  Weight: 59.4 kg

DRUGS (7)
  1. SULFAMETHOXAZOLE/TRIM-ETHOPRIM [Concomitant]
  2. KROGER MULTI-VITAMIN [Concomitant]
  3. TRADER JOE^S ODORLESS FISH OIL [Concomitant]
  4. CLINDAMYCIN. [Concomitant]
     Active Substance: CLINDAMYCIN
  5. LAMOTRIGINE. [Suspect]
     Active Substance: LAMOTRIGINE
     Indication: EPILEPSY
     Dosage: ?          QUANTITY:130 TABLET(S);OTHER FREQUENCY:1/D2WKS,2/D2WKS,4/;?
     Route: 048
     Dates: start: 20160502, end: 20160514
  6. LEVETIRACETAM. [Concomitant]
     Active Substance: LEVETIRACETAM
  7. ESCITALOPRAM [Concomitant]
     Active Substance: ESCITALOPRAM OXALATE

REACTIONS (4)
  - Dyskinesia [None]
  - Insomnia [None]
  - Heart rate increased [None]
  - Chest pain [None]

NARRATIVE: CASE EVENT DATE: 20160612
